FAERS Safety Report 6232495-5 (Version None)
Quarter: 2009Q2

REPORT INFORMATION
  Report Type: 
  Country: None (occurrence: None)
  Receive Date: 20090617
  Receipt Date: 20090609
  Transmission Date: 20091009
  Serious: Yes (Other)
  Sender: FDA-Public Use
  Company Number: US-BAYER-200918793NA

PATIENT
  Age: 52 Year
  Sex: Female
  Weight: 141 kg

DRUGS (11)
  1. AVELOX [Suspect]
     Indication: CELLULITIS
     Dosage: TOTAL DAILY DOSE: 400 MG  UNIT DOSE: 400 MG
     Route: 048
     Dates: start: 20090407, end: 20090408
  2. ADVAIR HFA [Concomitant]
  3. NEXIUM [Concomitant]
  4. ALBUTEROL [Concomitant]
  5. TRAMADOL HCL [Concomitant]
  6. LASIX [Concomitant]
  7. DIOVAN HCT [Concomitant]
  8. TOPROL-XL [Concomitant]
  9. SINGULAIR [Concomitant]
  10. SYNTHROID [Concomitant]
  11. METHADONE [Concomitant]

REACTIONS (6)
  - ANAPHYLACTIC REACTION [None]
  - COUGH [None]
  - DYSPNOEA [None]
  - PRURITUS [None]
  - RASH [None]
  - URTICARIA [None]
